FAERS Safety Report 9514525 (Version 1)
Quarter: 2013Q3

REPORT INFORMATION
  Report Type: Spontaneous
  Country: BR (occurrence: BR)
  Receive Date: 20130911
  Receipt Date: 20130911
  Transmission Date: 20140515
  Serious: Yes (Other)
  Sender: FDA-Public Use
  Company Number: BR-ASTRAZENECA-2013SE67786

PATIENT
  Age: 61 Year
  Sex: Female

DRUGS (2)
  1. MEROPENEM [Suspect]
     Indication: URINARY TRACT INFECTION
     Route: 042
  2. VASOACTIVE DRUGS [Concomitant]
     Indication: CARDIAC FAILURE

REACTIONS (1)
  - Epilepsy [Recovered/Resolved]
